FAERS Safety Report 6248432-3 (Version None)
Quarter: 2009Q2

REPORT INFORMATION
  Report Type: 
  Country: None (occurrence: None)
  Receive Date: 20090629
  Receipt Date: 20090624
  Transmission Date: 20091009
  Serious: Yes (Death)
  Sender: FDA-Public Use
  Company Number: PHHY2009IN25228

PATIENT
  Age: 62 Year
  Sex: Male

DRUGS (2)
  1. SANDOSTATIN LAR [Suspect]
     Dosage: 10 MG, QMO
  2. SANDOSTATIN LAR [Suspect]
     Dosage: 20 MG, QMO

REACTIONS (1)
  - NEOPLASM MALIGNANT [None]
